FAERS Safety Report 11712004 (Version 1)
Quarter: 2015Q4

REPORT INFORMATION
  Report Type: Spontaneous
  Country: US (occurrence: US)
  Receive Date: 20151104
  Receipt Date: 20151104
  Transmission Date: 20160304
  Serious: No
  Sender: FDA-Public Use
  Company Number: US-ELI_LILLY_AND_COMPANY-US201106003079

PATIENT
  Age: 69 Year
  Sex: Female

DRUGS (2)
  1. FORTEO [Suspect]
     Active Substance: TERIPARATIDE
     Indication: OSTEOPOROSIS
     Dosage: 20 UG, QD
     Dates: start: 20110601
  2. BETA BLOCKING AGENTS [Concomitant]
     Active Substance: UNSPECIFIED INGREDIENT

REACTIONS (6)
  - Atrial fibrillation [Unknown]
  - Myalgia [Unknown]
  - Breast pain [Unknown]
  - Constipation [Unknown]
  - Vomiting [Unknown]
  - Arthralgia [Unknown]

NARRATIVE: CASE EVENT DATE: 20110607
